FAERS Safety Report 5109361-1 (Version None)
Quarter: 2006Q3

REPORT INFORMATION
  Report Type: 
  Country: None (occurrence: None)
  Receive Date: 20060920
  Receipt Date: 20060911
  Transmission Date: 20061208
  Serious: Yes (Hospitalization)
  Sender: FDA-Public Use
  Company Number: JP-JNJFOC-20060502015

PATIENT
  Sex: Female
  Weight: 36 kg

DRUGS (13)
  1. REMICADE [Suspect]
     Route: 042
  2. REMICADE [Suspect]
     Route: 042
  3. REMICADE [Suspect]
     Indication: RHEUMATOID ARTHRITIS
     Route: 042
  4. RIMATIL [Suspect]
     Route: 048
  5. RIMATIL [Suspect]
     Indication: RHEUMATOID ARTHRITIS
     Route: 048
  6. AZULFIDINE EN-TABS [Suspect]
     Route: 048
  7. AZULFIDINE EN-TABS [Suspect]
     Indication: RHEUMATOID ARTHRITIS
     Route: 048
  8. RHEUMATREX [Suspect]
     Indication: RHEUMATOID ARTHRITIS
     Route: 048
  9. ISCOTIN [Suspect]
     Route: 048
  10. ISCOTIN [Suspect]
     Indication: ANTIBIOTIC PROPHYLAXIS
     Route: 048
  11. FOLIAMIN [Concomitant]
     Indication: PROPHYLAXIS
     Route: 048
  12. MOBIC [Concomitant]
     Route: 048
  13. OMEPRAZOLE [Concomitant]

REACTIONS (10)
  - ALANINE AMINOTRANSFERASE INCREASED [None]
  - CRYPTOGENIC ORGANISING PNEUMONIA [None]
  - GRAM STAIN POSITIVE [None]
  - HAEMATOCRIT DECREASED [None]
  - HYPERSENSITIVITY [None]
  - OEDEMA PERIPHERAL [None]
  - PAIN IN EXTREMITY [None]
  - PNEUMONITIS [None]
  - RASH [None]
  - RED BLOOD CELL COUNT DECREASED [None]
